FAERS Safety Report 17408805 (Version 2)
Quarter: 2020Q2

REPORT INFORMATION
  Report Type: Spontaneous
  Country: US (occurrence: US)
  Receive Date: 20200212
  Receipt Date: 20200430
  Transmission Date: 20200713
  Serious: No
  Sender: FDA-Public Use
  Company Number: US-TEVA-2020-US-1182338

PATIENT
  Sex: Female

DRUGS (5)
  1. OMEPRAZOLE. [Concomitant]
     Active Substance: OMEPRAZOLE
     Dosage: IN MORNING
     Route: 065
  2. CLONAZEPAM TEVA [Suspect]
     Active Substance: CLONAZEPAM
     Indication: ANXIETY
     Dosage: DOSE 0.5, 1/4 TAB AT BEDTIME
     Route: 065
     Dates: start: 20200112
  3. TRIAMTERENE. [Concomitant]
     Active Substance: TRIAMTERENE
     Dosage: 5 MILLIGRAM DAILY; AT BED TIME
     Route: 065
  4. ONDANSETRON HCL [Concomitant]
     Active Substance: ONDANSETRON HYDROCHLORIDE
     Dosage: EVERY 8 HRS IF NEEDED
     Route: 065
  5. CLONAZEPAM TEVA [Suspect]
     Active Substance: CLONAZEPAM
     Indication: PANIC ATTACK

REACTIONS (3)
  - Pruritus [Recovered/Resolved]
  - Vulvovaginal pruritus [Recovered/Resolved]
  - Urinary tract infection [Recovered/Resolved]

NARRATIVE: CASE EVENT DATE: 202001
